FAERS Safety Report 17095246 (Version 1)
Quarter: 2019Q4

REPORT INFORMATION
  Report Type: Spontaneous
  Country: CN (occurrence: CN)
  Receive Date: 20191130
  Receipt Date: 20191130
  Transmission Date: 20200122
  Serious: Yes (Life-Threatening, Other)
  Sender: FDA-Public Use
  Company Number: CN-JNJFOC-20191130826

PATIENT

DRUGS (1)
  1. IBUPROFEN. [Suspect]
     Active Substance: IBUPROFEN
     Indication: PATENT DUCTUS ARTERIOSUS
     Dosage: 3 DOSES AS 1 COURSE OF TREATMENT, AT AN INITIAL DOSE OF 10 MG/KG, 5 MG/KG EACH WAS GIVEN AFTER 24 HO
     Route: 050

REACTIONS (15)
  - Neonatal infection [Unknown]
  - Gastrointestinal haemorrhage [Unknown]
  - Off label use [Unknown]
  - Feeding intolerance [Unknown]
  - Therapeutic response unexpected [Unknown]
  - Necrotising enterocolitis neonatal [Unknown]
  - Pulmonary arterial hypertension [Unknown]
  - Product use in unapproved indication [Unknown]
  - Retinopathy of prematurity [Unknown]
  - Oliguria [Unknown]
  - Pulmonary haemorrhage neonatal [Unknown]
  - Sepsis [Unknown]
  - Neonatal respiratory distress syndrome [Unknown]
  - Intraventricular haemorrhage neonatal [Unknown]
  - Bronchopulmonary dysplasia [Unknown]
